FAERS Safety Report 6137423-9 (Version None)
Quarter: 2009Q1

REPORT INFORMATION
  Report Type: 
  Country: None (occurrence: None)
  Receive Date: 20090326
  Receipt Date: 20090318
  Transmission Date: 20090719
  Serious: Yes (Hospitalization, Other)
  Sender: FDA-Public Use
  Company Number: 2009-00322

PATIENT
  Age: 69 Year
  Sex: Female
  Weight: 62 kg

DRUGS (6)
  1. VELCADE [Suspect]
     Indication: ACUTE MYELOID LEUKAEMIA
     Dosage: 1.3 MG/M2, INTRAVENOUS
     Route: 042
     Dates: start: 20090116, end: 20090126
  2. DAUNORUBICIN HCL [Suspect]
     Indication: ACUTE MYELOID LEUKAEMIA
     Dosage: 60 MG/M2, INTRAVENOUS
     Route: 042
     Dates: start: 20090116, end: 20090118
  3. CYTARABINE [Suspect]
     Indication: ACUTE MYELOID LEUKAEMIA
     Dosage: 100 MG/M2, INTRAVENOUS
     Route: 042
     Dates: start: 20090116, end: 20090123
  4. BENAZEPRIL HYDROCHLORIDE [Concomitant]
  5. COREG [Concomitant]
  6. PLAVIX [Concomitant]

REACTIONS (8)
  - ARRHYTHMIA SUPRAVENTRICULAR [None]
  - ATRIAL FIBRILLATION [None]
  - DIZZINESS [None]
  - INTRACARDIAC THROMBUS [None]
  - LEFT VENTRICULAR DYSFUNCTION [None]
  - OEDEMA PERIPHERAL [None]
  - PLEURAL EFFUSION [None]
  - PULMONARY OEDEMA [None]
